FAERS Safety Report 9179358 (Version 1)
Quarter: 2013Q1

REPORT INFORMATION
  Report Type: Spontaneous
  Country: US (occurrence: US)
  Receive Date: 20130321
  Receipt Date: 20130321
  Transmission Date: 20140127
  Serious: Yes (Hospitalization, Other)
  Sender: FDA-Public Use
  Company Number: US-ROCHE-1189708

PATIENT
  Age: 6 Year
  Sex: Female
  Weight: 23.15 kg

DRUGS (2)
  1. TAMIFLU [Suspect]
     Indication: INFLUENZA
     Dosage: 8CC
     Route: 048
     Dates: start: 20130204, end: 20130208
  2. ADVIL [Concomitant]

REACTIONS (5)
  - Myalgia [Not Recovered/Not Resolved]
  - Pain in extremity [Recovered/Resolved]
  - Blood creatine phosphokinase increased [Recovering/Resolving]
  - Pain [Recovering/Resolving]
  - Local swelling [Unknown]
